FAERS Safety Report 25445595 (Version 1)
Quarter: 2025Q2

REPORT INFORMATION
  Report Type: Spontaneous
  Country: US (occurrence: None)
  Receive Date: 20250616
  Receipt Date: 20250616
  Transmission Date: 20250717
  Serious: Yes (Hospitalization)
  Sender: FDA-CTU
  Company Number: None

PATIENT
  Age: 71 Year
  Sex: Female
  Weight: 49.2 kg

DRUGS (3)
  1. BENRALIZUMAB [Suspect]
     Active Substance: BENRALIZUMAB
     Indication: Asthma
     Route: 058
     Dates: start: 20250513, end: 20250513
  2. MIRTAZAPINE [Concomitant]
     Active Substance: MIRTAZAPINE
     Dates: start: 20250417
  3. NALTREXONE [Concomitant]
     Active Substance: NALTREXONE
     Dates: start: 20250314, end: 20250523

REACTIONS (14)
  - Dyskinesia [None]
  - Myoclonus [None]
  - Muscle fatigue [None]
  - Asthenia [None]
  - Fall [None]
  - Hypophagia [None]
  - Hypernatraemia [None]
  - Hypertransaminasaemia [None]
  - Blood creatine phosphokinase abnormal [None]
  - Tardive dyskinesia [None]
  - Akathisia [None]
  - Insomnia [None]
  - Feeling jittery [None]
  - Muscle spasms [None]

NARRATIVE: CASE EVENT DATE: 20250515
